FAERS Safety Report 8331424-8 (Version None)
Quarter: 2012Q2

REPORT INFORMATION
  Report Type: 
  Country: None (occurrence: None)
  Receive Date: 20120502
  Receipt Date: 20120417
  Transmission Date: 20120825
  Serious: No
  Sender: FDA-Public Use
  Company Number: US-AMGEN-USASP2011009642

PATIENT
  Age: 49 Year
  Sex: Female

DRUGS (2)
  1. ENBREL [Suspect]
     Indication: RHEUMATOID ARTHRITIS
     Dosage: 50 MG, QWK
     Dates: start: 20081110
  2. ENBREL [Suspect]
     Indication: SJOGREN'S SYNDROME

REACTIONS (5)
  - DRY EYE [None]
  - EYE PRURITUS [None]
  - EYE INFLAMMATION [None]
  - VISION BLURRED [None]
  - EYE DISCHARGE [None]
